FAERS Safety Report 10043170 (Version 2)
Quarter: 2014Q2

REPORT INFORMATION
  Report Type: Spontaneous
  Country: US (occurrence: US)
  Receive Date: 20140328
  Receipt Date: 20140410
  Transmission Date: 20141212
  Serious: Yes (Hospitalization)
  Sender: FDA-Public Use
  Company Number: US-BRISTOL-MYERS SQUIBB COMPANY-20548236

PATIENT
  Age: 69 Year
  Sex: Female

DRUGS (7)
  1. SPRYCEL [Suspect]
     Indication: CHRONIC MYELOID LEUKAEMIA
     Dates: start: 20130329
  2. MUCINEX [Concomitant]
  3. PAROXETINE [Concomitant]
  4. EVISTA [Concomitant]
  5. LEVOTHYROXINE [Concomitant]
  6. LISINOPRIL + HCTZ [Concomitant]
     Dosage: 1DF: 10-12.5MG
  7. LIVALO [Concomitant]

REACTIONS (3)
  - Pneumonia [Recovered/Resolved]
  - Dehydration [Unknown]
  - Hypokalaemia [Unknown]
